FAERS Safety Report 18451647 (Version 2)
Quarter: 2020Q4

REPORT INFORMATION
  Report Type: Report from Study
  Country: RU (occurrence: RU)
  Receive Date: 20201102
  Receipt Date: 20201109
  Transmission Date: 20210114
  Serious: Yes (Other)
  Sender: FDA-Public Use
  Company Number: RU-VIIV HEALTHCARE LIMITED-RU2020GSK213730

PATIENT
  Age: 69 Year
  Sex: Female

DRUGS (5)
  1. DOLUTEGRAVIR [Suspect]
     Active Substance: DOLUTEGRAVIR
     Indication: HIV INFECTION
     Dosage: 50 MG, QD
     Route: 048
     Dates: start: 20200804
  2. LOPINAVIR+RITONAVIR [Concomitant]
     Active Substance: LOPINAVIR\RITONAVIR
     Indication: ANTIRETROVIRAL THERAPY
     Dosage: UNK
     Dates: start: 20150417
  3. TENOFOVIR [Concomitant]
     Active Substance: TENOFOVIR
     Indication: HIV INFECTION
     Dosage: 300 MG, QD
     Route: 048
     Dates: start: 20190912
  4. LAMIVUDIN [Concomitant]
     Active Substance: LAMIVUDINE
     Indication: HIV INFECTION
     Dosage: 300 MG, QD
     Route: 048
     Dates: start: 20170818
  5. LAMIVUDIN + ZIDOVUDIN [Concomitant]
     Indication: ANTIRETROVIRAL THERAPY
     Dosage: UNK
     Dates: start: 20150417

REACTIONS (2)
  - Foetal death [Unknown]
  - Exposure during pregnancy [Unknown]

NARRATIVE: CASE EVENT DATE: 20201023
